FAERS Safety Report 20763731 (Version 2)
Quarter: 2022Q2

REPORT INFORMATION
  Report Type: Spontaneous
  Country: US (occurrence: US)
  Receive Date: 20220428
  Receipt Date: 20220523
  Transmission Date: 20220720
  Serious: Yes (Hospitalization, Other)
  Sender: FDA-Public Use
  Company Number: US-ORGANON-O2204USA001738

PATIENT
  Age: 62 Year
  Sex: Female

DRUGS (2)
  1. COZAAR [Suspect]
     Active Substance: LOSARTAN POTASSIUM
     Dosage: 30-50 MILLIGRAMS
     Route: 048
  2. INSULIN NOS [Suspect]
     Active Substance: INSULIN NOS
     Dosage: 2.5 10-ML VIALS OF INSULIN

REACTIONS (2)
  - Suicide attempt [Recovering/Resolving]
  - Intentional overdose [Unknown]
